FAERS Safety Report 13544016 (Version 2)
Quarter: 2017Q2

REPORT INFORMATION
  Report Type: Spontaneous
  Country: US (occurrence: US)
  Receive Date: 20170515
  Receipt Date: 20170607
  Transmission Date: 20170830
  Serious: No
  Sender: FDA-Public Use
  Company Number: PHEH2017US014216

PATIENT
  Age: 63 Year
  Sex: Female
  Weight: 85 kg

DRUGS (3)
  1. COSENTYX [Suspect]
     Active Substance: SECUKINUMAB
     Indication: PSORIASIS
     Dosage: 2 DF, UNK
     Route: 030
     Dates: start: 20170201
  2. COSENTYX [Suspect]
     Active Substance: SECUKINUMAB
     Dosage: 300 MG, QMO
     Route: 058
     Dates: start: 20170301
  3. COSENTYX [Suspect]
     Active Substance: SECUKINUMAB
     Dosage: 300 MG, QMO
     Route: 058
     Dates: start: 20170509

REACTIONS (6)
  - Lip swelling [Unknown]
  - Incorrect route of drug administration [Unknown]
  - Oral candidiasis [Recovered/Resolved]
  - Upper respiratory tract infection [Recovered/Resolved]
  - Oral candidiasis [Recovered/Resolved]
  - Swollen tongue [Unknown]

NARRATIVE: CASE EVENT DATE: 20170401
